FAERS Safety Report 10205099 (Version 1)
Quarter: 2014Q2

REPORT INFORMATION
  Report Type: Spontaneous
  Country: US (occurrence: US)
  Receive Date: 20140529
  Receipt Date: 20140529
  Transmission Date: 20141212
  Serious: No
  Sender: FDA-Public Use
  Company Number: US-PFIZER INC-2014148011

PATIENT
  Age: 78 Year
  Sex: Female
  Weight: 58.05 kg

DRUGS (4)
  1. LYRICA [Suspect]
     Indication: DIABETIC NEUROPATHY
     Dosage: 50 MG, 2X/DAY
     Dates: start: 20140514
  2. LYRICA [Suspect]
     Indication: INTERVERTEBRAL DISC PROTRUSION
  3. LYRICA [Suspect]
     Indication: NEURALGIA
  4. METFORMIN [Concomitant]
     Indication: DIABETES MELLITUS
     Dosage: UNK

REACTIONS (2)
  - Dizziness [Unknown]
  - Speech disorder [Unknown]
